FAERS Safety Report 5120546-0 (Version None)
Quarter: 2006Q4

REPORT INFORMATION
  Report Type: 
  Country: None (occurrence: None)
  Receive Date: 20061004
  Receipt Date: 20060927
  Transmission Date: 20070319
  Serious: Yes (Hospitalization)
  Sender: FDA-Public Use
  Company Number: KR-BRISTOL-MYERS SQUIBB COMPANY-13523402

PATIENT
  Age: 63 Year
  Sex: Male

DRUGS (26)
  1. CISPLATIN [Suspect]
     Indication: NON-SMALL CELL LUNG CANCER
     Route: 042
     Dates: start: 20060829
  2. PF-3512676 [Suspect]
     Indication: NON-SMALL CELL LUNG CANCER
     Route: 058
     Dates: start: 20060904
  3. GEMCITABINE [Suspect]
     Indication: NON-SMALL CELL LUNG CANCER
     Route: 042
     Dates: start: 20060904
  4. MUCOSTA [Concomitant]
     Route: 048
     Dates: start: 20060822, end: 20060911
  5. VALIUM [Concomitant]
     Route: 048
     Dates: start: 20060822, end: 20060829
  6. ZOLPIDEM TARTRATE [Concomitant]
     Route: 048
     Dates: start: 20060820, end: 20060829
  7. HARNAL [Concomitant]
     Route: 048
     Dates: start: 20060824, end: 20060904
  8. MAGNESIUM HYDROXIDE TAB [Concomitant]
     Route: 048
     Dates: start: 20060825, end: 20060911
  9. MESULID [Concomitant]
     Route: 048
     Dates: start: 20060825, end: 20060911
  10. OXYCONTIN [Concomitant]
     Route: 048
     Dates: start: 20060823, end: 20060911
  11. MEGACE [Concomitant]
     Route: 048
     Dates: start: 20060829, end: 20060911
  12. DEXAMETHASONE TAB [Concomitant]
     Route: 048
     Dates: start: 20060829, end: 20060829
  13. RAMOSETRON [Concomitant]
     Route: 048
     Dates: start: 20060830, end: 20060901
  14. RAMOSETRON [Concomitant]
     Route: 042
     Dates: start: 20060829, end: 20060829
  15. POTASSIUM CHLORIDE [Concomitant]
     Route: 042
     Dates: start: 20060829, end: 20060830
  16. FUROSEMIDE [Concomitant]
     Route: 042
     Dates: start: 20060829, end: 20060830
  17. MANNITOL [Concomitant]
     Route: 042
     Dates: start: 20060829, end: 20060829
  18. RANITIDINE [Concomitant]
     Route: 042
     Dates: start: 20060829, end: 20060829
  19. SEROQUEL [Concomitant]
     Route: 048
     Dates: start: 20060830, end: 20060830
  20. FAMOTIDINE [Concomitant]
     Route: 048
     Dates: start: 20060831, end: 20060904
  21. FENTANYL [Concomitant]
     Route: 061
     Dates: start: 20060831, end: 20060911
  22. METOCLOPRAMIDE HCL [Concomitant]
     Route: 042
     Dates: start: 20060904, end: 20060904
  23. FREAMINE [Concomitant]
     Route: 042
     Dates: start: 20060904, end: 20060904
  24. ACETAMINOPHEN [Concomitant]
     Route: 048
     Dates: start: 20060904, end: 20060904
  25. CALCIUM CARBONATE+MAGNESIUM HYDROXIDE [Concomitant]
     Route: 048
     Dates: start: 20060829, end: 20060911
  26. DIGESTIVE ENZYMES [Concomitant]
     Route: 048
     Dates: start: 20060830, end: 20060830

REACTIONS (3)
  - INFLUENZA LIKE ILLNESS [None]
  - NEUTROPENIA [None]
  - THROMBOCYTOPENIA [None]
